FAERS Safety Report 13614913 (Version 3)
Quarter: 2017Q2

REPORT INFORMATION
  Report Type: Spontaneous
  Country: US (occurrence: US)
  Receive Date: 20170606
  Receipt Date: 20170616
  Transmission Date: 20170830
  Serious: No
  Sender: FDA-Public Use
  Company Number: US-TAKEDA-2017TUS012206

PATIENT
  Age: 80 Year
  Sex: Male
  Weight: 62.13 kg

DRUGS (1)
  1. DEXILANT [Suspect]
     Active Substance: DEXLANSOPRAZOLE
     Indication: GASTROOESOPHAGEAL REFLUX DISEASE
     Dosage: 60 MG, QD
     Route: 050
     Dates: start: 20170529

REACTIONS (7)
  - Fatigue [Unknown]
  - Furuncle [Unknown]
  - Abdominal pain [Unknown]
  - Sleep disorder [Unknown]
  - Insomnia [Unknown]
  - Restlessness [Unknown]
  - Defaecation urgency [Unknown]

NARRATIVE: CASE EVENT DATE: 20170530
